FAERS Safety Report 25405328 (Version 1)
Quarter: 2025Q2

REPORT INFORMATION
  Report Type: Spontaneous
  Country: BR (occurrence: BR)
  Receive Date: 20250606
  Receipt Date: 20250606
  Transmission Date: 20250716
  Serious: Yes (Other)
  Sender: AUROBINDO
  Company Number: BR-AUROBINDO-AUR-APL-2022-024108

PATIENT
  Age: 63 Year
  Sex: Male

DRUGS (7)
  1. MEROPENEM [Suspect]
     Active Substance: MEROPENEM
     Indication: Visceral leishmaniasis
     Route: 042
  2. MEROPENEM [Suspect]
     Active Substance: MEROPENEM
     Indication: Plasmacytosis
  3. AMPHOTERICIN B [Suspect]
     Active Substance: AMPHOTERICIN B
     Indication: Visceral leishmaniasis
     Route: 042
  4. ALBENDAZOLE [Suspect]
     Active Substance: ALBENDAZOLE
     Indication: Visceral leishmaniasis
     Route: 048
  5. ALBENDAZOLE [Suspect]
     Active Substance: ALBENDAZOLE
     Indication: Plasmacytosis
  6. IVERMECTIN [Suspect]
     Active Substance: IVERMECTIN
     Indication: Visceral leishmaniasis
     Route: 048
  7. IVERMECTIN [Suspect]
     Active Substance: IVERMECTIN
     Indication: Plasmacytosis

REACTIONS (1)
  - Drug ineffective [Unknown]
